FAERS Safety Report 5369930-0 (Version None)
Quarter: 2007Q2

REPORT INFORMATION
  Report Type: 
  Country: None (occurrence: None)
  Receive Date: 20070621
  Receipt Date: 20070602
  Transmission Date: 20071010
  Serious: Yes (Other)
  Sender: FDA-Public Use
  Company Number: ENT 2007-0068

PATIENT
  Age: 78 Year
  Sex: Female

DRUGS (6)
  1. COMTAN [Suspect]
     Indication: PARKINSON'S DISEASE
     Dosage: ORAL
     Route: 048
  2. SYMMETREL [Suspect]
     Dosage: 100 MG ORAL
     Route: 048
  3. BENECID [Concomitant]
  4. CABASER [Concomitant]
  5. SIFROL [Concomitant]
  6. SELEGILINE HCL [Concomitant]

REACTIONS (1)
  - HALLUCINATION, VISUAL [None]
